FAERS Safety Report 13270370 (Version 1)
Quarter: 2017Q1

REPORT INFORMATION
  Report Type: Spontaneous
  Country: US (occurrence: US)
  Receive Date: 20170224
  Receipt Date: 20170224
  Transmission Date: 20170428
  Serious: No
  Sender: FDA-Public Use
  Company Number: US-GLAXOSMITHKLINE-US2017025473

PATIENT
  Age: 76 Year
  Sex: Male

DRUGS (1)
  1. NICODERM CQ [Suspect]
     Active Substance: NICOTINE
     Indication: TOBACCO USER
     Dosage: 21 MG, UNK
     Dates: start: 20170202

REACTIONS (5)
  - Drug ineffective for unapproved indication [Unknown]
  - Condition aggravated [Unknown]
  - Nightmare [Not Recovered/Not Resolved]
  - Anxiety [Unknown]
  - Product use issue [Unknown]

NARRATIVE: CASE EVENT DATE: 20170202
